FAERS Safety Report 25447521 (Version 1)
Quarter: 2025Q2

REPORT INFORMATION
  Report Type: Spontaneous
  Country: US (occurrence: US)
  Receive Date: 20250617
  Receipt Date: 20250617
  Transmission Date: 20250716
  Serious: Yes (Other)
  Sender: AMGEN
  Company Number: US-AMGEN-USASP2025116701

PATIENT
  Age: 73 Year
  Sex: Female

DRUGS (1)
  1. ENBREL [Suspect]
     Active Substance: ETANERCEPT
     Indication: Rheumatoid arthritis
     Dosage: 50 MILLIGRAM, QD
     Route: 065
     Dates: end: 2025

REACTIONS (5)
  - Neuropathy peripheral [Recovered/Resolved]
  - Off label use [Unknown]
  - Eye swelling [Recovered/Resolved]
  - Piloerection [Recovered/Resolved]
  - Dry eye [Recovered/Resolved]
